FAERS Safety Report 16501142 (Version 2)
Quarter: 2019Q3

REPORT INFORMATION
  Report Type: Spontaneous
  Country: JP (occurrence: JP)
  Receive Date: 20190701
  Receipt Date: 20190703
  Transmission Date: 20191004
  Serious: Yes (Hospitalization, Other)
  Sender: FDA-Public Use
  Company Number: JP-SAKK-2019SA173678AA

PATIENT
  Age: 65 Year
  Sex: Female

DRUGS (3)
  1. DOCETAXEL. [Suspect]
     Active Substance: DOCETAXEL
     Indication: BREAST CANCER STAGE II
     Route: 065
  2. FARMORUBICIN [Concomitant]
     Active Substance: EPIRUBICIN HYDROCHLORIDE
     Indication: BREAST CANCER STAGE II
     Route: 065
  3. ENDOXAN ASTA [Concomitant]
     Active Substance: CYCLOPHOSPHAMIDE
     Indication: BREAST CANCER STAGE II
     Route: 065

REACTIONS (5)
  - Cough [Unknown]
  - Septic embolus [Unknown]
  - Pulmonary mass [Recovering/Resolving]
  - Lung abscess [Unknown]
  - Malaise [Unknown]
